FAERS Safety Report 8527168 (Version 3)
Quarter: 2013Q3

REPORT INFORMATION
  Report Type: Report from Study
  Country: MX (occurrence: MX)
  Receive Date: 20120424
  Receipt Date: 20130806
  Transmission Date: 20140515
  Serious: Yes (Hospitalization, Other)
  Sender: FDA-Public Use
  Company Number: PHHY2012MX032033

PATIENT
  Age: 47 Year
  Sex: Female

DRUGS (4)
  1. EXFORGE HCT [Suspect]
     Indication: HYPERTENSION
     Dosage: 1 TABLET (160/5/12.5 MG) PER DAY
     Dates: start: 20120320
  2. EXFORGE HCT [Suspect]
     Dosage: 2 TABLETS (160/5/12.5 MG) PER DAY
     Dates: start: 20120327
  3. METFORMIN [Concomitant]
     Dosage: 2 TABLETS PER DAY
  4. GLIBENCLAMIDE W/METFORMIN [Concomitant]
     Dosage: 3 DF (5/500 MG), EVERY 24 HOURS

REACTIONS (6)
  - Cataract [Unknown]
  - Eye haemorrhage [Recovered/Resolved]
  - Eye inflammation [Unknown]
  - Emotional disorder [Unknown]
  - Visual impairment [Unknown]
  - Hypertension [Recovered/Resolved]
